FAERS Safety Report 6803664-8 (Version None)
Quarter: 2010Q2

REPORT INFORMATION
  Report Type: 
  Country: None (occurrence: None)
  Receive Date: 20100628
  Receipt Date: 20100615
  Transmission Date: 20101027
  Serious: Yes (Hospitalization)
  Sender: FDA-Public Use
  Company Number: CH-ELI_LILLY_AND_COMPANY-CH201006005348

PATIENT
  Age: 74 Year
  Sex: Male

DRUGS (7)
  1. CYMBALTA [Suspect]
     Dosage: 90 MG, DAILY (1/D)
     Route: 048
  2. SINTROM [Concomitant]
     Dosage: UNK UNK, AS NEEDED
     Route: 048
     Dates: end: 20100311
  3. SEROQUEL [Concomitant]
  4. LORAZEPAM [Concomitant]
  5. TENORMIN [Concomitant]
  6. SORTIS [Concomitant]
  7. METOTREXATO [Concomitant]

REACTIONS (3)
  - AGITATION [None]
  - ANAEMIA [None]
  - EPISTAXIS [None]
